FAERS Safety Report 7414086-3 (Version None)
Quarter: 2011Q2

REPORT INFORMATION
  Report Type: 
  Country: None (occurrence: None)
  Receive Date: 20110414
  Receipt Date: 20110411
  Transmission Date: 20111010
  Serious: Yes (Other)
  Sender: FDA-Public Use
  Company Number: US-PFIZER INC-2011079244

PATIENT
  Sex: Female
  Weight: 84 kg

DRUGS (2)
  1. WELLBUTRIN [Suspect]
     Indication: SMOKING CESSATION THERAPY
     Dosage: UNK
     Route: 048
  2. CHANTIX [Suspect]
     Indication: SMOKING CESSATION THERAPY
     Dosage: 1 MG, 2X/DAY
     Route: 048
     Dates: start: 20110208, end: 20110406

REACTIONS (5)
  - ANXIETY [None]
  - IRRITABILITY [None]
  - CRYING [None]
  - RASH [None]
  - DEPRESSION [None]
